FAERS Safety Report 5763862-1 (Version None)
Quarter: 2008Q2

REPORT INFORMATION
  Report Type: 
  Country: None (occurrence: None)
  Receive Date: 20080606
  Receipt Date: 20080606
  Transmission Date: 20081010
  Serious: No
  Sender: FDA-Public Use
  Company Number: None

PATIENT
  Age: 14 Year
  Sex: Female
  Weight: 63.5036 kg

DRUGS (2)
  1. YAZ [Suspect]
     Indication: ACNE
     Dosage: DAILY PO
     Route: 048
     Dates: start: 20080405, end: 20080426
  2. YAZ [Suspect]
     Indication: CONTRACEPTION
     Dosage: DAILY PO
     Route: 048
     Dates: start: 20080405, end: 20080426

REACTIONS (1)
  - HEADACHE [None]
